FAERS Safety Report 9933089 (Version 1)
Quarter: 2014Q1

REPORT INFORMATION
  Report Type: Spontaneous
  Country: US (occurrence: US)
  Receive Date: 20140228
  Receipt Date: 20140228
  Transmission Date: 20141002
  Serious: Yes (Other)
  Sender: FDA-Public Use
  Company Number: US-GLAXOSMITHKLINE-A1048686A

PATIENT
  Age: 64 Year
  Sex: Female

DRUGS (10)
  1. LAMICTAL [Suspect]
     Indication: CONVULSION
     Dosage: 150MG TWICE PER DAY
     Route: 048
     Dates: start: 200811
  2. DILANTIN [Concomitant]
  3. KEPPRA [Concomitant]
  4. NOVOLOG [Concomitant]
  5. UNKNOWN MEDICATION [Concomitant]
  6. GABAPENTIN [Concomitant]
  7. AGGRENOX [Concomitant]
  8. ATENOLOL [Concomitant]
  9. LISINOPRIL [Concomitant]
  10. EYE DROPS [Concomitant]

REACTIONS (3)
  - Convulsion [Not Recovered/Not Resolved]
  - Confusional state [Not Recovered/Not Resolved]
  - Drug ineffective [Unknown]
